FAERS Safety Report 13608141 (Version 2)
Quarter: 2017Q4

REPORT INFORMATION
  Report Type: Report from Study
  Country: JP (occurrence: JP)
  Receive Date: 20170602
  Receipt Date: 20171115
  Transmission Date: 20180320
  Serious: Yes (Life-Threatening, Hospitalization)
  Sender: FDA-Public Use
  Company Number: JP-ACTELION-A-CH2015-114025

PATIENT
  Age: 24 Year
  Sex: Male

DRUGS (31)
  1. EPOPROSTENOL ACT [Suspect]
     Active Substance: EPOPROSTENOL
     Dosage: 58 NG/KG, PER MIN
     Route: 042
     Dates: start: 20140510, end: 20140609
  2. EPOPROSTENOL ACT [Suspect]
     Active Substance: EPOPROSTENOL
     Dosage: 99 NG/KG, PER MIN
     Route: 042
     Dates: start: 20150210
  3. NADIFLOXACIN [Concomitant]
     Active Substance: NADIFLOXACIN
  4. EPOPROSTENOL ACT [Suspect]
     Active Substance: EPOPROSTENOL
     Dosage: 68 NG/KG, PER MIN
     Route: 042
     Dates: start: 20140710, end: 20140809
  5. EPOPROSTENOL ACT [Suspect]
     Active Substance: EPOPROSTENOL
     Dosage: 166 NG/KG, PER MIN
     Route: 042
     Dates: start: 20150410
  6. FUROSEMIDE. [Concomitant]
     Active Substance: FUROSEMIDE
  7. EPOPROSTENOL ACT [Suspect]
     Active Substance: EPOPROSTENOL
     Dosage: 72 NG/KG, PER MIN
     Route: 042
     Dates: start: 20140810, end: 20140909
  8. FERROUS SODIUM CITRATE [Concomitant]
     Active Substance: SODIUM FERROUS CITRATE
  9. EPOPROSTENOL ACT [Suspect]
     Active Substance: EPOPROSTENOL
     Dosage: 85 NG/KG, PER MIN
     Route: 042
     Dates: start: 20141110, end: 20141209
  10. EPOPROSTENOL ACT [Suspect]
     Active Substance: EPOPROSTENOL
     Dosage: 89 NG/KG, PER MIN
     Route: 042
     Dates: start: 20141210, end: 20150109
  11. HEPARINOID [Concomitant]
     Active Substance: CHONDROITIN SULFATE (BOVINE)
  12. LOPERAMIDE [Concomitant]
     Active Substance: LOPERAMIDE
  13. BERBERINE [Concomitant]
     Active Substance: BERBERINE
  14. TRACLEER [Suspect]
     Active Substance: BOSENTAN
     Indication: PULMONARY ARTERIAL HYPERTENSION
     Dosage: UNK
     Route: 048
     Dates: start: 20111020, end: 201509
  15. OLOPATADINE. [Concomitant]
     Active Substance: OLOPATADINE
  16. EPOPROSTENOL ACT [Suspect]
     Active Substance: EPOPROSTENOL
     Indication: PULMONARY ARTERIAL HYPERTENSION
     Dosage: 45 NG/KG, PER MIN
     Route: 042
     Dates: start: 20140210, end: 20140309
  17. EPOPROSTENOL ACT [Suspect]
     Active Substance: EPOPROSTENOL
     Dosage: 49 NG/KG, PER MIN
     Route: 042
     Dates: start: 20140310, end: 20140509
  18. EPOPROSTENOL ACT [Suspect]
     Active Substance: EPOPROSTENOL
     Dosage: 81 NG/KG, PER MIN
     Route: 042
     Dates: start: 20141010, end: 20141109
  19. OPSUMIT [Concomitant]
     Active Substance: MACITENTAN
     Indication: PULMONARY ARTERIAL HYPERTENSION
  20. BERAPROST [Concomitant]
     Active Substance: BERAPROST
  21. RULID [Concomitant]
     Active Substance: ROXITHROMYCIN
  22. EPOPROSTENOL ACT [Suspect]
     Active Substance: EPOPROSTENOL
     Dosage: 63 NG/KG, PER MIN
     Route: 042
     Dates: start: 20140610, end: 20140709
  23. EPOPROSTENOL ACT [Suspect]
     Active Substance: EPOPROSTENOL
     Dosage: 77 NG/KG, PER MIN
     Route: 042
     Dates: start: 20140910, end: 20141009
  24. EPOPROSTENOL ACT [Suspect]
     Active Substance: EPOPROSTENOL
     Dosage: 94 NG/KG, PER MIN
     Route: 042
     Dates: start: 20150110, end: 20150209
  25. WHITE PETROLATUM [Concomitant]
     Active Substance: PETROLATUM
  26. TADALAFIL [Concomitant]
     Active Substance: TADALAFIL
  27. SPIRONOLACTON [Concomitant]
     Active Substance: SPIRONOLACTONE
  28. EPOPROSTENOL ACT [Suspect]
     Active Substance: EPOPROSTENOL
     Dosage: 81 NG/KG, PER MIN
     Route: 042
     Dates: start: 20141010, end: 20141109
  29. OXYGEN. [Concomitant]
     Active Substance: OXYGEN
  30. TORASEMIDE [Concomitant]
     Active Substance: TORSEMIDE
  31. DIFLUPREDNATE [Concomitant]
     Active Substance: DIFLUPREDNATE

REACTIONS (6)
  - Haematoma evacuation [Unknown]
  - Haemostasis [Unknown]
  - Device related infection [Recovered/Resolved]
  - Dermatitis [Recovering/Resolving]
  - Haemothorax [Recovered/Resolved]
  - Catheter removal [Recovered/Resolved]

NARRATIVE: CASE EVENT DATE: 20140210
